FAERS Safety Report 14076780 (Version 2)
Quarter: 2017Q4

REPORT INFORMATION
  Report Type: Spontaneous
  Country: US (occurrence: US)
  Receive Date: 20171011
  Receipt Date: 20171103
  Transmission Date: 20180321
  Serious: No
  Sender: FDA-Public Use
  Company Number: US-BAYER-2017-190803

PATIENT
  Age: 53 Year
  Sex: Female

DRUGS (2)
  1. CLIMARA [Suspect]
     Active Substance: ESTRADIOL
     Indication: MENOPAUSE
     Dosage: UNK
     Route: 062
     Dates: start: 20171019
  2. CLIMARA [Suspect]
     Active Substance: ESTRADIOL
     Indication: MENOPAUSE
     Dosage: 0.01 MG, UNK
     Route: 062
     Dates: start: 20170918

REACTIONS (5)
  - Dizziness [None]
  - Drug ineffective [None]
  - Feeling abnormal [None]
  - Product adhesion issue [None]
  - Product shape issue [None]

NARRATIVE: CASE EVENT DATE: 2017
